FAERS Safety Report 5409106-1 (Version None)
Quarter: 2007Q3

REPORT INFORMATION
  Report Type: 
  Country: None (occurrence: None)
  Receive Date: 20070806
  Receipt Date: 20070802
  Transmission Date: 20080115
  Serious: Yes (Death, Hospitalization)
  Sender: FDA-Public Use
  Company Number: TCI2007A02927

PATIENT
  Age: 88 Year
  Sex: Male

DRUGS (6)
  1. LEUPROLIDE ACETATE [Suspect]
     Indication: PROSTATE CANCER
     Dosage: 11.25 MG (11.25 MG, 1 IN 12 WK), SUBCUTANEOUS
     Route: 058
     Dates: start: 20060224, end: 20070502
  2. ATELEC (CILNIDIPINE) (TABLETS) [Concomitant]
  3. MICARDIS [Concomitant]
  4. FRANDOL TAPE (POULTICE OR PATCH) [Concomitant]
  5. WARFARIN (WARFARIN POTASSIUM)(TABLETS) [Concomitant]
  6. MAGNESIUM OXIDE (PREPARATION FOR ORAL USE(NOS)) [Concomitant]

REACTIONS (3)
  - CARDIAC FAILURE [None]
  - GASTRIC ULCER [None]
  - PNEUMONIA [None]
